FAERS Safety Report 21944209 (Version 1)
Quarter: 2023Q1

REPORT INFORMATION
  Report Type: Spontaneous
  Country: US (occurrence: US)
  Receive Date: 20230202
  Receipt Date: 20230202
  Transmission Date: 20230418
  Serious: No
  Sender: FDA-Public Use
  Company Number: US-AMGEN-USASP2023013347

PATIENT
  Age: 61 Year

DRUGS (2)
  1. PROLIA [Suspect]
     Active Substance: DENOSUMAB
     Indication: Osteoarthritis
     Dosage: 60 MILLIGRAM, Q6MO
     Route: 058
     Dates: start: 202005
  2. PROLIA [Suspect]
     Active Substance: DENOSUMAB
     Indication: Osteoporosis

REACTIONS (1)
  - Device difficult to use [Unknown]

NARRATIVE: CASE EVENT DATE: 20230120
